FAERS Safety Report 10268353 (Version 1)
Quarter: 2014Q2

REPORT INFORMATION
  Report Type: Spontaneous
  Country: US (occurrence: None)
  Receive Date: 20140626
  Receipt Date: 20140626
  Transmission Date: 20141212
  Serious: No
  Sender: FDA-Public Use
  Company Number: None

PATIENT
  Age: 61 Year
  Sex: Male
  Weight: 88 kg

DRUGS (2)
  1. HEPARIN [Suspect]
     Indication: VENA CAVA THROMBOSIS
     Dates: start: 20140428, end: 20140509
  2. CLOPIDOGREL [Suspect]
     Indication: CORONARY ARTERY DISEASE
     Route: 048
     Dates: start: 20120806, end: 20140509

REACTIONS (5)
  - Gastrointestinal haemorrhage [None]
  - Haemorrhage [None]
  - Gastric haemorrhage [None]
  - Haemoglobin decreased [None]
  - Haematocrit decreased [None]
